FAERS Safety Report 21158933 (Version 1)
Quarter: 2022Q3

REPORT INFORMATION
  Report Type: Spontaneous
  Country: US (occurrence: None)
  Receive Date: 20220802
  Receipt Date: 20220802
  Transmission Date: 20221027
  Serious: No
  Sender: FDA-Public Use
  Company Number: 2022A268347

PATIENT
  Age: 18872 Day
  Sex: Male
  Weight: 89.8 kg

DRUGS (1)
  1. BYDUREON BCISE [Suspect]
     Active Substance: EXENATIDE
     Route: 058

REACTIONS (2)
  - Injury associated with device [Unknown]
  - Device delivery system issue [Unknown]

NARRATIVE: CASE EVENT DATE: 20220721
